FAERS Safety Report 7112038-4 (Version None)
Quarter: 2010Q4

REPORT INFORMATION
  Report Type: 
  Country: None (occurrence: None)
  Receive Date: 20101119
  Receipt Date: 20101115
  Transmission Date: 20110411
  Serious: Yes (Other)
  Sender: FDA-Public Use
  Company Number: US-PFIZER INC-2010059411

PATIENT
  Sex: Male
  Weight: 72.562 kg

DRUGS (12)
  1. CHANTIX [Suspect]
     Indication: SMOKING CESSATION THERAPY
     Dosage: 0.5 MG, 1X/DAY
     Route: 048
     Dates: start: 20100401
  2. CHANTIX [Suspect]
     Dosage: 1 MG, 1X/DAY
     Route: 048
     Dates: start: 20100901
  3. CHANTIX [Suspect]
     Dosage: 1 MG, 2X/DAY
     Dates: end: 20101001
  4. CHANTIX [Suspect]
     Dosage: UNK
  5. BENAZEPRIL HYDROCHLORIDE [Concomitant]
     Indication: BLOOD PRESSURE ABNORMAL
     Dosage: 40 MG, 1X/DAY
     Route: 048
  6. METOPROLOL [Concomitant]
     Indication: CARDIAC DISORDER
     Dosage: 60 MG, 1X/DAY
     Route: 048
  7. LASIX [Concomitant]
     Indication: BLOOD PRESSURE ABNORMAL
     Dosage: 20 MG, 1X/DAY
     Route: 048
  8. AMLODIPINE [Concomitant]
     Indication: BLOOD PRESSURE ABNORMAL
     Dosage: 5 MG, UNK
     Route: 048
  9. NITROGLYCERIN [Concomitant]
     Indication: CHEST PAIN
     Dosage: 0.3 MG, UNK
     Route: 048
  10. OXYCODONE [Concomitant]
     Indication: CHEST PAIN
     Dosage: 15 MG, 4X/DAY
     Route: 048
  11. LORAZEPAM [Concomitant]
     Indication: ANXIETY
     Dosage: 1 MG, 3X/DAY
     Route: 048
  12. GLYBURIDE [Concomitant]
     Indication: DIABETES MELLITUS
     Dosage: 5 MG, UNK
     Route: 048

REACTIONS (10)
  - ABDOMINAL PAIN UPPER [None]
  - ABNORMAL DREAMS [None]
  - DEPRESSION [None]
  - DYSGEUSIA [None]
  - HALLUCINATION [None]
  - INCORRECT DOSE ADMINISTERED [None]
  - INSOMNIA [None]
  - NIGHTMARE [None]
  - STRESS [None]
  - SUICIDAL IDEATION [None]
